FAERS Safety Report 9517347 (Version 2)
Quarter: 2013Q3

REPORT INFORMATION
  Report Type: Spontaneous
  Country: US (occurrence: US)
  Receive Date: 20130911
  Receipt Date: 20130911
  Transmission Date: 20140515
  Serious: Yes (Other)
  Sender: FDA-Public Use
  Company Number: US-COVIDIEN/TYCO HEALTHCARE/MALLINCKRODT-T201304312

PATIENT
  Age: 59 Year
  Sex: Male
  Weight: 83.9 kg

DRUGS (7)
  1. FENTANYL TRANSDERMAL SYSTEM [Suspect]
     Indication: NERVE COMPRESSION
     Dosage: 75 UG/HR, 2 PATCHES EVERY 48 HOURS
     Route: 062
     Dates: start: 201308
  2. FENTANYL TRANSDERMAL SYSTEM [Suspect]
     Indication: PAIN
  3. FENTANYL [Concomitant]
     Indication: NERVE COMPRESSION
     Dosage: 75 UG/HR, 2 PATCHES Q48H
     Dates: end: 201308
  4. FENTANYL [Concomitant]
     Indication: PAIN
  5. LYRICA [Concomitant]
     Indication: PRODUCT USED FOR UNKNOWN INDICATION
     Dosage: UNK
     Route: 048
  6. ALPRAZOLAM [Concomitant]
     Indication: PRODUCT USED FOR UNKNOWN INDICATION
     Dosage: UNK
     Route: 048
  7. TIZANIDINE [Concomitant]
     Indication: MUSCLE SPASTICITY
     Dosage: 4 MG, TID
     Route: 048
     Dates: start: 2011

REACTIONS (4)
  - Overdose [Recovered/Resolved]
  - Loss of consciousness [Recovered/Resolved]
  - Abnormal behaviour [Recovered/Resolved]
  - Somnolence [Recovered/Resolved]
